FAERS Safety Report 24705479 (Version 1)
Quarter: 2024Q4

REPORT INFORMATION
  Report Type: Spontaneous
  Country: CN (occurrence: CN)
  Receive Date: 20241206
  Receipt Date: 20241206
  Transmission Date: 20250115
  Serious: Yes (Hospitalization)
  Sender: RANBAXY
  Company Number: CN-SUN PHARMACEUTICAL INDUSTRIES LTD-2024R1-481616

PATIENT
  Age: 34 Year
  Sex: Female
  Weight: 50 kg

DRUGS (3)
  1. PALIPERIDONE [Suspect]
     Active Substance: PALIPERIDONE
     Indication: Schizophrenia
     Dosage: 9 MILLIGRAM, QD
     Route: 048
     Dates: start: 20240812, end: 20240917
  2. LEUCOGEN [Concomitant]
     Active Substance: LEUCOGEN
     Indication: Platelet count decreased
     Dosage: 20 MILLIGRAM, TID
     Route: 048
     Dates: start: 20240812, end: 20241123
  3. LEUCOGEN [Concomitant]
     Active Substance: LEUCOGEN
     Indication: White blood cell count decreased

REACTIONS (1)
  - Menstruation delayed [Not Recovered/Not Resolved]
